FAERS Safety Report 17689921 (Version 1)
Quarter: 2020Q2

REPORT INFORMATION
  Report Type: Spontaneous
  Country: US (occurrence: US)
  Receive Date: 20200421
  Receipt Date: 20200421
  Transmission Date: 20200714
  Serious: No
  Sender: FDA-Public Use
  Company Number: US-009507513-2004USA004643

PATIENT
  Age: 20 Year
  Sex: Female
  Weight: 67.13 kg

DRUGS (1)
  1. NEXPLANON [Suspect]
     Active Substance: ETONOGESTREL
     Indication: CONTRACEPTION
     Dosage: 1 DOSAGE FORM, FREQUENCY REPORTED AS 4YEARS, LEFT ARM
     Route: 059
     Dates: start: 20170623

REACTIONS (4)
  - Dysmenorrhoea [Not Recovered/Not Resolved]
  - Inappropriate schedule of product administration [Unknown]
  - Amenorrhoea [Recovered/Resolved]
  - Metrorrhagia [Not Recovered/Not Resolved]

NARRATIVE: CASE EVENT DATE: 20170623
